FAERS Safety Report 19210857 (Version 1)
Quarter: 2021Q2

REPORT INFORMATION
  Report Type: Spontaneous
  Country: US (occurrence: US)
  Receive Date: 20210504
  Receipt Date: 20210504
  Transmission Date: 20210717
  Serious: No
  Sender: FDA-Public Use
  Company Number: US-GILEAD-2021-0526621

PATIENT
  Sex: Male

DRUGS (7)
  1. MULTIVIT [VITAMINS NOS] [Concomitant]
  2. OMEPRAZOLE. [Concomitant]
     Active Substance: OMEPRAZOLE
  3. GABAPENTIN. [Concomitant]
     Active Substance: GABAPENTIN
  4. SOFOSBUVIR;VELPATASVIR [Suspect]
     Active Substance: SOFOSBUVIR\VELPATASVIR
     Indication: CHRONIC HEPATITIS C
     Dosage: 1 DOSAGE FORM, QD
     Route: 048
     Dates: end: 202101
  5. E?VITAMIN [Concomitant]
  6. DOXYCYCLINE. [Concomitant]
     Active Substance: DOXYCYCLINE
  7. AMLODIPINE [Concomitant]
     Active Substance: AMLODIPINE BESYLATE

REACTIONS (3)
  - Memory impairment [Unknown]
  - Product dose omission issue [Recovered/Resolved]
  - Nausea [Unknown]
